FAERS Safety Report 24956985 (Version 1)
Quarter: 2025Q1

REPORT INFORMATION
  Report Type: Spontaneous
  Country: FR (occurrence: FR)
  Receive Date: 20250211
  Receipt Date: 20250211
  Transmission Date: 20250409
  Serious: Yes (Hospitalization)
  Sender: INTERCHEM
  Company Number: FR-HQ SPECIALTY-FR-2025INT000012

PATIENT
  Age: 44 Year
  Sex: Male
  Weight: 109 kg

DRUGS (5)
  1. DEXMEDETOMIDINE HYDROCHLORIDE [Suspect]
     Active Substance: DEXMEDETOMIDINE HYDROCHLORIDE
     Indication: Agitation
     Dosage: 12.26 ML/H (0.9 MICROGRAM/KILOGRAM, 1 HR)
     Route: 065
     Dates: start: 20230621, end: 20230621
  2. DEXMEDETOMIDINE HYDROCHLORIDE [Suspect]
     Active Substance: DEXMEDETOMIDINE HYDROCHLORIDE
     Dosage: 19.06 ML/H (1.4 MICROGRAM/KILOGRAM, 1 HR)
     Route: 065
     Dates: start: 20230622, end: 20230622
  3. DEXMEDETOMIDINE HYDROCHLORIDE [Suspect]
     Active Substance: DEXMEDETOMIDINE HYDROCHLORIDE
     Dosage: 6.84 ML/H (0.5 MICROGRAM/KILOGRAM, 1 HR)
     Route: 065
     Dates: start: 20230624, end: 20230624
  4. TIAPRIDE HYDROCHLORIDE [Suspect]
     Active Substance: TIAPRIDE HYDROCHLORIDE
     Indication: Restlessness
     Dosage: 3.12 ML/H (300 MG, 1 D)
     Route: 065
     Dates: start: 20230621, end: 20230624
  5. IPRATROPIUM BROMIDE [Suspect]
     Active Substance: IPRATROPIUM BROMIDE
     Indication: Chronic obstructive pulmonary disease
     Dosage: 0.5 MG, Q8H
     Route: 065
     Dates: start: 20230618, end: 20230627

REACTIONS (2)
  - Ileus [Recovering/Resolving]
  - Product use in unapproved indication [Unknown]

NARRATIVE: CASE EVENT DATE: 20230622
